FAERS Safety Report 25015024 (Version 2)
Quarter: 2025Q2

REPORT INFORMATION
  Report Type: Report from Study
  Country: US (occurrence: US)
  Receive Date: 20250226
  Receipt Date: 20250516
  Transmission Date: 20250716
  Serious: Yes (Hospitalization, Other)
  Sender: PFIZER
  Company Number: US-PFIZER INC-202500042983

PATIENT
  Age: 66 Year
  Sex: Male
  Weight: 91.156 kg

DRUGS (15)
  1. INLYTA [Suspect]
     Active Substance: AXITINIB
     Indication: Renal cancer
     Dosage: 3 MG, 2X/DAY
     Route: 048
     Dates: start: 2020
  2. INLYTA [Suspect]
     Active Substance: AXITINIB
     Dates: start: 2024, end: 2024
  3. INLYTA [Suspect]
     Active Substance: AXITINIB
     Dates: start: 2024, end: 2024
  4. INLYTA [Suspect]
     Active Substance: AXITINIB
     Dates: start: 202505, end: 202505
  5. INLYTA [Suspect]
     Active Substance: AXITINIB
     Dosage: 3 MG, 2X/DAY
     Dates: start: 202505
  6. ALBUTEROL SULFATE [Concomitant]
     Active Substance: ALBUTEROL SULFATE
  7. ALLOPURINOL [Concomitant]
     Active Substance: ALLOPURINOL
  8. AMLODIPINE [Concomitant]
     Active Substance: AMLODIPINE BESYLATE
  9. ATORVASTATIN [Concomitant]
     Active Substance: ATORVASTATIN
  10. CETIRIZINE [Concomitant]
     Active Substance: CETIRIZINE HYDROCHLORIDE
  11. FAMOTIDINE [Concomitant]
     Active Substance: FAMOTIDINE
  12. FLUTICASONE PROPIONATE [Concomitant]
     Active Substance: FLUTICASONE PROPIONATE
     Route: 045
  13. LABETALOL [Concomitant]
     Active Substance: LABETALOL
  14. TRAZODONE [Concomitant]
     Active Substance: TRAZODONE HYDROCHLORIDE
  15. VIAGRA [Concomitant]
     Active Substance: SILDENAFIL CITRATE

REACTIONS (15)
  - Bronchitis [Recovered/Resolved]
  - Pneumonia [Recovered/Resolved]
  - Erectile dysfunction [Not Recovered/Not Resolved]
  - Shoulder operation [Recovering/Resolving]
  - Skin disorder [Recovering/Resolving]
  - Pain of skin [Recovering/Resolving]
  - Gait disturbance [Recovering/Resolving]
  - Stomatitis [Recovering/Resolving]
  - Diarrhoea [Recovering/Resolving]
  - Constipation [Recovering/Resolving]
  - Nausea [Recovering/Resolving]
  - Fatigue [Recovering/Resolving]
  - Decreased immune responsiveness [Unknown]
  - Nasopharyngitis [Recovering/Resolving]
  - Respiratory tract infection [Recovering/Resolving]

NARRATIVE: CASE EVENT DATE: 20240501
